APPROVED DRUG PRODUCT: MICAFUNGIN
Active Ingredient: MICAFUNGIN SODIUM
Strength: EQ 100MG BASE/VIAL
Dosage Form/Route: POWDER;INTRAVENOUS
Application: N212156 | Product #002
Applicant: PH HEALTH LTD
Approved: Jun 16, 2021 | RLD: Yes | RS: Yes | Type: RX